FAERS Safety Report 8773298 (Version 1)
Quarter: 2012Q4

REPORT INFORMATION
  Report Type: 
  Country: FR (occurrence: FR)
  Receive Date: 20120907
  Receipt Date: 20120907
  Transmission Date: 20130627
  Serious: Yes (Other)
  Sender: FDA-Public Use
  Company Number: FR-ROCHE-1099670

PATIENT
  Age: 73 Year
  Sex: Male

DRUGS (7)
  1. BEVACIZUMAB [Suspect]
     Indication: COLORECTAL CANCER
     Route: 065
  2. BEVACIZUMAB [Suspect]
     Indication: METASTASES TO LIVER
  3. OXALIPLATIN [Concomitant]
     Indication: COLORECTAL CANCER
  4. OXALIPLATIN [Concomitant]
     Indication: METASTASES TO LIVER
  5. 5-FLUOROURACIL [Concomitant]
     Indication: COLORECTAL CANCER
  6. 5-FLUOROURACIL [Concomitant]
     Indication: METASTASES TO LIVER
  7. FOLINIC ACID [Concomitant]

REACTIONS (2)
  - Autoimmune thrombocytopenia [Recovered/Resolved]
  - Blood bilirubin unconjugated increased [Unknown]
